FAERS Safety Report 8847045 (Version 1)
Quarter: 2012Q4

REPORT INFORMATION
  Report Type: Spontaneous
  Country: US (occurrence: None)
  Receive Date: 20121017
  Receipt Date: 20121017
  Transmission Date: 20130627
  Serious: Yes (Life-Threatening, Hospitalization, Disabling)
  Sender: FDA-Public Use
  Company Number: None

PATIENT
  Age: 62 Year
  Sex: Female
  Weight: 83.3 kg

DRUGS (2)
  1. ALTEPLASE [Suspect]
     Indication: ISCHAEMIC STROKE
     Route: 040
     Dates: start: 20120330, end: 20120330
  2. ALTEPLASE [Suspect]
     Indication: ISCHAEMIC STROKE
     Route: 041

REACTIONS (4)
  - Blood pressure increased [None]
  - Hemiparesis [None]
  - VIIth nerve paralysis [None]
  - Dysarthria [None]
